FAERS Safety Report 9481593 (Version 1)
Quarter: 2013Q3

REPORT INFORMATION
  Report Type: Spontaneous
  Country: US (occurrence: US)
  Receive Date: 20130828
  Receipt Date: 20130828
  Transmission Date: 20140515
  Serious: Yes (Hospitalization)
  Sender: FDA-Public Use
  Company Number: US-AMGEN-KDL176715

PATIENT
  Age: 52 Year
  Sex: Male

DRUGS (2)
  1. ENBREL [Suspect]
     Indication: PSORIATIC ARTHROPATHY
     Dosage: 25 MG, 2 TIMES/WK
     Route: 058
     Dates: start: 20040801
  2. ENBREL [Suspect]
     Indication: PSORIASIS

REACTIONS (9)
  - Blood pressure increased [Unknown]
  - Eye irritation [Unknown]
  - Oropharyngeal pain [Unknown]
  - Pain [Unknown]
  - Asthenia [Unknown]
  - Diarrhoea [Unknown]
  - Dysgeusia [Unknown]
  - Psoriasis [Unknown]
  - Condition aggravated [Unknown]
